FAERS Safety Report 14914614 (Version 2)
Quarter: 2018Q2

REPORT INFORMATION
  Report Type: Spontaneous
  Country: US (occurrence: US)
  Receive Date: 20180518
  Receipt Date: 20180622
  Transmission Date: 20180711
  Serious: No
  Sender: FDA-Public Use
  Company Number: US-JAZZ-JPI-P-020995

PATIENT
  Age: 50 Year
  Sex: Male
  Weight: 84.91 kg

DRUGS (5)
  1. XYREM [Suspect]
     Active Substance: SODIUM OXYBATE
     Indication: NARCOLEPSY
     Dosage: 3.75 G, BID
     Route: 048
     Dates: start: 20120408, end: 2012
  2. ALLEGRA-D [Concomitant]
     Active Substance: FEXOFENADINE\PSEUDOEPHEDRINE
  3. XYREM [Suspect]
     Active Substance: SODIUM OXYBATE
     Indication: CATAPLEXY
     Dosage: 4.5 G, BID
     Route: 048
     Dates: start: 2012
  4. CITALOPRAM HYDROBROMIDE. [Concomitant]
     Active Substance: CITALOPRAM HYDROBROMIDE
  5. XANAX [Concomitant]
     Active Substance: ALPRAZOLAM

REACTIONS (11)
  - Initial insomnia [Not Recovered/Not Resolved]
  - Panic attack [Unknown]
  - Paraesthesia [Recovered/Resolved]
  - Anxiety [Unknown]
  - Somnolence [Recovered/Resolved]
  - Hypoaesthesia oral [Recovered/Resolved]
  - Tremor [Unknown]
  - Insomnia [Unknown]
  - Oropharyngeal pain [Recovered/Resolved]
  - Nervousness [Unknown]
  - Hypertension [Unknown]

NARRATIVE: CASE EVENT DATE: 201204
